FAERS Safety Report 8240887-8 (Version None)
Quarter: 2012Q1

REPORT INFORMATION
  Report Type: 
  Country: None (occurrence: None)
  Receive Date: 20120328
  Receipt Date: 20120321
  Transmission Date: 20120608
  Serious: Yes (Hospitalization, Other)
  Sender: FDA-Public Use
  Company Number: CH-ELI_LILLY_AND_COMPANY-CH201203001930

PATIENT
  Sex: Male
  Weight: 65 kg

DRUGS (5)
  1. EFFIENT [Suspect]
     Dosage: 10 MG, UNK
     Dates: end: 20120207
  2. DIOVAN HCT [Concomitant]
     Dosage: 160/12.5 MG
  3. EFFIENT [Suspect]
     Indication: PERCUTANEOUS CORONARY INTERVENTION
     Dosage: 60 MG, UNK
     Dates: start: 20111220
  4. ASPIRIN [Concomitant]
     Dosage: 100 MG, UNK
  5. ATORVASTATIN CALCIUM [Concomitant]
     Dosage: 20 MG, UNK

REACTIONS (2)
  - GASTRIC ULCER [None]
  - MELAENA [None]
